FAERS Safety Report 9276015 (Version 1)
Quarter: 2013Q2

REPORT INFORMATION
  Report Type: Not Available
  Country: FR (occurrence: FR)
  Receive Date: 20130507
  Receipt Date: 20130514
  Transmission Date: 20140414
  Serious: Yes (Hospitalization)
  Sender: FDA-Public Use
  Company Number: FR-NAPPMUNDI-GBR-2013-0013865

PATIENT
  Age: 48 Year
  Sex: Female

DRUGS (2)
  1. MOSCONTIN, COMPRIME ENROBE A LIBERATION PROLONGEE [Suspect]
     Indication: DRUG REHABILITATION
     Dosage: 600 MG, DAILY
     Route: 042
     Dates: start: 1997
  2. HYDROCORTISONE [Concomitant]
     Indication: ADRENAL INSUFFICIENCY

REACTIONS (6)
  - Skin ulcer [Recovering/Resolving]
  - Injection site abscess [Recovering/Resolving]
  - Drug dependence [Unknown]
  - Cyanosis [Unknown]
  - Incorrect route of drug administration [Unknown]
  - Off label use [Unknown]
